FAERS Safety Report 10960573 (Version 1)
Quarter: 2015Q1

REPORT INFORMATION
  Report Type: Spontaneous
  Country: US (occurrence: US)
  Receive Date: 20150327
  Receipt Date: 20150327
  Transmission Date: 20150721
  Serious: Yes (Other)
  Sender: FDA-Public Use
  Company Number: US-JNJFOC-20150312633

PATIENT
  Sex: Female

DRUGS (4)
  1. CHILDRENS BENADRYL ALLERGY [Suspect]
     Active Substance: DIPHENHYDRAMINE HYDROCHLORIDE
     Route: 048
  2. CHILDRENS ADVIL [Concomitant]
     Active Substance: IBUPROFEN
     Indication: INJURY
     Route: 065
  3. CHILDRENS BENADRYL ALLERGY [Suspect]
     Active Substance: DIPHENHYDRAMINE HYDROCHLORIDE
     Indication: FOOD ALLERGY
     Dosage: 1 TEASPOONFUL, AS NECESSARY,??FOR 3 DAYS
     Route: 048
  4. CHILDRENS ADVIL [Concomitant]
     Active Substance: IBUPROFEN
     Indication: PYREXIA
     Route: 065

REACTIONS (6)
  - Throat tightness [Unknown]
  - Respiratory distress [Unknown]
  - Product use issue [Unknown]
  - Hypersensitivity [Unknown]
  - Drug ineffective [Unknown]
  - Underdose [Unknown]
